FAERS Safety Report 18081806 (Version 1)
Quarter: 2020Q3

REPORT INFORMATION
  Report Type: Spontaneous
  Country: JP (occurrence: JP)
  Receive Date: 20200728
  Receipt Date: 20200728
  Transmission Date: 20201103
  Serious: Yes (Other)
  Sender: FDA-Public Use
  Company Number: JP-ROCHE-2646872

PATIENT
  Age: 52 Year
  Sex: Female

DRUGS (1)
  1. ACTEMRA [Suspect]
     Active Substance: TOCILIZUMAB
     Indication: STILL^S DISEASE
     Dosage: DOSAGE IS UNCERTAIN.
     Route: 042

REACTIONS (6)
  - Gamma-glutamyltransferase increased [Unknown]
  - Platelet count decreased [Recovering/Resolving]
  - White blood cell count increased [Unknown]
  - Petechiae [Unknown]
  - Arthralgia [Unknown]
  - Oropharyngeal pain [Unknown]
